FAERS Safety Report 15761367 (Version 2)
Quarter: 2019Q1

REPORT INFORMATION
  Report Type: Report from Study
  Country: None (occurrence: US)
  Receive Date: 20181226
  Receipt Date: 20190107
  Transmission Date: 20190417
  Serious: Yes (Other)
  Sender: FDA-Public Use
  Company Number: US-ABBVIE-18K-163-2598030-00

PATIENT
  Age: 57 Year
  Sex: Female

DRUGS (2)
  1. PREDNISONE. [Concomitant]
     Active Substance: PREDNISONE
     Indication: PRODUCT USED FOR UNKNOWN INDICATION
  2. HUMIRA [Suspect]
     Active Substance: ADALIMUMAB
     Indication: PSORIATIC ARTHROPATHY
     Route: 058
     Dates: start: 20181121

REACTIONS (25)
  - Urticaria [Recovered/Resolved]
  - Vulvovaginal inflammation [Not Recovered/Not Resolved]
  - Therapeutic response unexpected [Unknown]
  - Weight decreased [Unknown]
  - Joint swelling [Recovering/Resolving]
  - Pre-existing condition improved [Unknown]
  - Psoriatic arthropathy [Unknown]
  - Vaginal discharge [Not Recovered/Not Resolved]
  - Gait disturbance [Recovering/Resolving]
  - Skin exfoliation [Not Recovered/Not Resolved]
  - Eye haemorrhage [Recovered/Resolved]
  - Oral disorder [Unknown]
  - Skin disorder [Unknown]
  - Loss of consciousness [Recovered/Resolved]
  - Dizziness [Recovered/Resolved]
  - Vulvovaginal erythema [Not Recovered/Not Resolved]
  - Weight decreased [Recovered/Resolved]
  - Vertigo [Recovered/Resolved]
  - Hypersensitivity [Not Recovered/Not Resolved]
  - Acne [Not Recovered/Not Resolved]
  - Vulvovaginal pruritus [Not Recovered/Not Resolved]
  - Therapeutic response shortened [Unknown]
  - Peripheral swelling [Recovered/Resolved]
  - Injection site urticaria [Not Recovered/Not Resolved]
  - Oedema peripheral [Recovered/Resolved]

NARRATIVE: CASE EVENT DATE: 2018
